APPROVED DRUG PRODUCT: MINITEC
Active Ingredient: TECHNETIUM TC-99M SODIUM PERTECHNETATE GENERATOR
Strength: 0.22-2.22 CI/GENERATOR
Dosage Form/Route: SOLUTION;INJECTION, ORAL
Application: N017339 | Product #001
Applicant: BRACCO DIAGNOSTICS INC
Approved: Approved Prior to Jan 1, 1982 | RLD: No | RS: No | Type: DISCN